FAERS Safety Report 19989243 (Version 1)
Quarter: 2021Q4

REPORT INFORMATION
  Report Type: Spontaneous
  Country: US (occurrence: US)
  Receive Date: 20211025
  Receipt Date: 20211025
  Transmission Date: 20220303
  Serious: No
  Sender: FDA-Public Use
  Company Number: US-AMGEN-USASP2021163633

PATIENT
  Age: 76 Year
  Sex: Female

DRUGS (20)
  1. OTEZLA [Suspect]
     Active Substance: APREMILAST
     Indication: Psoriasis
     Dosage: 30 MILLIGRAM, BID
     Route: 048
     Dates: start: 20160630
  2. ALLERGY [DIPHENHYDRAMINE HYDROCHLORIDE] [Concomitant]
     Dosage: UNK
  3. AMLODIPINE, VALSARTAN AND HYDROCHLOROTHIAZIDE [Concomitant]
     Active Substance: AMLODIPINE BESYLATE\HYDROCHLOROTHIAZIDE\VALSARTAN
     Dosage: UNK
  4. ATORVASTATIN [Concomitant]
     Active Substance: ATORVASTATIN
     Dosage: UNK
  5. CALCIPOTRIENE [Concomitant]
     Active Substance: CALCIPOTRIENE
  6. CALCIUM [Concomitant]
     Active Substance: CALCIUM
     Dosage: UNK
  7. DERMASORB AF [Concomitant]
     Dosage: UNK
  8. FISH OIL [Concomitant]
     Active Substance: FISH OIL
     Dosage: UNK
  9. EMOLLIENTS [Concomitant]
     Active Substance: EMOLLIENTS
     Dosage: UNK
  10. LIPTOR [ATORVASTATIN CALCIUM] [Concomitant]
     Dosage: UNK
  11. MULTAQ [Concomitant]
     Active Substance: DRONEDARONE
     Dosage: UNK
  12. VITAMINS [Concomitant]
     Active Substance: VITAMINS
     Dosage: UNK
  13. PLAVIX [Concomitant]
     Active Substance: CLOPIDOGREL BISULFATE
     Dosage: UNK
  14. SYNTHROID [Concomitant]
     Active Substance: LEVOTHYROXINE SODIUM
     Dosage: UNK
  15. TACLONEX [Concomitant]
     Active Substance: BETAMETHASONE DIPROPIONATE\CALCIPOTRIENE\CALCIPOTRIENE HYDRATE
     Dosage: UNK
  16. TRIAMTERENE [Concomitant]
     Active Substance: TRIAMTERENE
     Dosage: UNK
  17. VITAMIN D3 [Concomitant]
     Active Substance: CHOLECALCIFEROL
     Dosage: UNK
  18. ZANTAC [Concomitant]
     Active Substance: RANITIDINE HYDROCHLORIDE
  19. CHOLECALCIFEROL [Concomitant]
     Active Substance: CHOLECALCIFEROL
  20. OXYCODONE AND ACETAMINOPHEN [Concomitant]
     Active Substance: ACETAMINOPHEN\OXYCODONE HYDROCHLORIDE

REACTIONS (1)
  - Psoriasis [Not Recovered/Not Resolved]

NARRATIVE: CASE EVENT DATE: 20211020
